FAERS Safety Report 22321985 (Version 3)
Quarter: 2023Q2

REPORT INFORMATION
  Report Type: Report from Study
  Country: FR (occurrence: FR)
  Receive Date: 20230516
  Receipt Date: 20230529
  Transmission Date: 20230721
  Serious: Yes (Disabling, Other)
  Sender: FDA-Public Use
  Company Number: FR-ABBVIE-4739223

PATIENT
  Age: 69 Year
  Sex: Female

DRUGS (3)
  1. CARBIDOPA\LEVODOPA [Suspect]
     Active Substance: CARBIDOPA\LEVODOPA
     Indication: Parkinson^s disease
     Dosage: REDUCTION OF FLOW RATE BY 0.2ML/H
     Route: 050
     Dates: start: 20230510
  2. CARBIDOPA\LEVODOPA [Suspect]
     Active Substance: CARBIDOPA\LEVODOPA
     Route: 050
     Dates: start: 20220211, end: 202304
  3. CARBIDOPA\LEVODOPA [Suspect]
     Active Substance: CARBIDOPA\LEVODOPA
     Dosage: INCREASED BY 0.2 ML PER DAY, POSSIBLY BY 0.4 ML IN THE AFTERNOON IN 48 HOURS
     Route: 050
     Dates: start: 202304, end: 20230510

REACTIONS (9)
  - Dyskinesia [Unknown]
  - Tremor [Unknown]
  - Movement disorder [Unknown]
  - Tooth avulsion [Unknown]
  - Toothache [Unknown]
  - Fall [Unknown]
  - Freezing phenomenon [Unknown]
  - Balance disorder [Unknown]
  - Dental discomfort [Not Recovered/Not Resolved]

NARRATIVE: CASE EVENT DATE: 20230101
